FAERS Safety Report 10433240 (Version 1)
Quarter: 2014Q3

REPORT INFORMATION
  Report Type: Spontaneous
  Country: CN (occurrence: CN)
  Receive Date: 20140905
  Receipt Date: 20140905
  Transmission Date: 20150326
  Serious: Yes (Disabling)
  Sender: FDA-Public Use
  Company Number: CN-PFIZER INC-2014246163

PATIENT
  Age: 68 Year
  Sex: Male
  Weight: 46 kg

DRUGS (2)
  1. MORPHINE [Concomitant]
     Active Substance: MORPHINE
     Dosage: UNK
     Dates: start: 20130401
  2. MS CONTIN [Suspect]
     Active Substance: MORPHINE SULFATE
     Indication: CANCER PAIN
     Dosage: 30 MG,Q12H
     Route: 048
     Dates: start: 20130402, end: 20130402

REACTIONS (6)
  - Joint lock [Unknown]
  - Pyrexia [Unknown]
  - Faecal incontinence [Unknown]
  - Dysaesthesia [Unknown]
  - Toxicity to various agents [Unknown]
  - Face oedema [Unknown]

NARRATIVE: CASE EVENT DATE: 20130402
